FAERS Safety Report 6684612-0 (Version None)
Quarter: 2010Q2

REPORT INFORMATION
  Report Type: 
  Country: None (occurrence: None)
  Receive Date: 20100416
  Receipt Date: 20100413
  Transmission Date: 20101027
  Serious: Yes (Hospitalization)
  Sender: FDA-Public Use
  Company Number: SE-ROCHE-697160

PATIENT

DRUGS (2)
  1. BEVACIZUMAB [Suspect]
     Dosage: ACTION TAKEN TO STUDY DRUG:PAUSED, ROUTE, DOSE, FORM PER PROTOCOL.
     Route: 042
     Dates: start: 20100319
  2. ERLOTINIB [Suspect]
     Dosage: ACTION TAKEN TO STUDY DRUGS: PAUSED, ROUTE, DOSE, FORM PER PROTOCOL
     Route: 048
     Dates: start: 20100319

REACTIONS (1)
  - HYPERBILIRUBINAEMIA [None]
